FAERS Safety Report 20730405 (Version 7)
Quarter: 2023Q4

REPORT INFORMATION
  Report Type: Spontaneous
  Country: US (occurrence: US)
  Receive Date: 20220420
  Receipt Date: 20231204
  Transmission Date: 20240110
  Serious: Yes (Other)
  Sender: FDA-Public Use
  Company Number: US-BRISTOL-MYERS SQUIBB COMPANY-2022-012465

PATIENT
  Age: 69 Year
  Sex: Female
  Weight: 58 kg

DRUGS (2)
  1. POMALYST [Suspect]
     Active Substance: POMALIDOMIDE
     Indication: Plasma cell myeloma in remission
     Dosage: FREQUENCY :2W ON, 2 W OFF
     Route: 048
     Dates: start: 20210101
  2. POMALYST [Suspect]
     Active Substance: POMALIDOMIDE
     Dosage: 14 DAY ON 14 OFF
     Route: 048

REACTIONS (24)
  - Fatigue [Unknown]
  - Asthenia [Unknown]
  - Neuropathy peripheral [Unknown]
  - Vision blurred [Unknown]
  - Dry throat [Unknown]
  - Alopecia [Unknown]
  - Muscle spasms [Unknown]
  - Dyspnoea [Unknown]
  - Off label use [Unknown]
  - Tongue dry [Unknown]
  - Memory impairment [Unknown]
  - Feeling abnormal [Unknown]
  - Dizziness [Unknown]
  - Chest pain [Unknown]
  - Nocturnal dyspnoea [Unknown]
  - Dyspepsia [Unknown]
  - Dysphagia [Unknown]
  - Neck pain [Unknown]
  - Nausea [Unknown]
  - Nasal pruritus [Unknown]
  - Eye pain [Recovered/Resolved]
  - Headache [Recovered/Resolved]
  - Pain in extremity [Recovered/Resolved]
  - Blepharospasm [Unknown]
